FAERS Safety Report 4462382-4 (Version None)
Quarter: 2004Q3

REPORT INFORMATION
  Report Type: 
  Country: None (occurrence: None)
  Receive Date: 20040923
  Receipt Date: 20040909
  Transmission Date: 20050211
  Serious: Yes (Hospitalization)
  Sender: FDA-Public Use
  Company Number: 2004-BP-07880BP

PATIENT
  Age: 91 Year
  Sex: Female
  Weight: 59.02 kg

DRUGS (7)
  1. MOBIC [Suspect]
     Indication: ARTHRITIS
     Dosage: SEE IMAGE
     Dates: end: 20040101
  2. MOBIC [Suspect]
     Indication: ARTHRITIS
     Dosage: SEE IMAGE
     Dates: end: 20040101
  3. SYNVISC (HYALURONATE SODIUM) [Suspect]
     Indication: LOCALISED OSTEOARTHRITIS
     Dosage: SEE TEXT (NR, 2 ML 1X PER WEEK FOR 2 WKS. IN RIGHT KNEE), IR
     Dates: start: 20040622, end: 20040715
  4. NEXIUM [Concomitant]
  5. ASPIRIN [Concomitant]
  6. VASOTEC [Concomitant]
  7. COREG [Concomitant]

REACTIONS (4)
  - DEHYDRATION [None]
  - DIARRHOEA [None]
  - GASTRIC ULCER [None]
  - VOMITING [None]
